FAERS Safety Report 9828533 (Version 1)
Quarter: 2014Q1

REPORT INFORMATION
  Report Type: Spontaneous
  Country: BR (occurrence: BR)
  Receive Date: 20140117
  Receipt Date: 20140117
  Transmission Date: 20141002
  Serious: Yes (Other)
  Sender: FDA-Public Use
  Company Number: BR-ASTRAZENECA-2014SE02551

PATIENT
  Age: 728 Month
  Sex: Male
  Weight: 77 kg

DRUGS (1)
  1. CRESTOR [Suspect]
     Indication: BLOOD CHOLESTEROL INCREASED
     Dosage: DAILY FREQUENCY
     Route: 048
     Dates: start: 201303

REACTIONS (1)
  - Hypertension [Not Recovered/Not Resolved]
